FAERS Safety Report 9503518 (Version 1)
Quarter: 2013Q1

REPORT INFORMATION
  Report Type: Spontaneous
  Country: US (occurrence: None)
  Receive Date: 20130130
  Receipt Date: 20130130
  Transmission Date: 20140127
  Serious: Yes (Hospitalization, Other)
  Sender: FDA-Public Use
  Company Number: US2012100004713

PATIENT
  Age: 35 Year
  Sex: Male
  Weight: 136.1 kg

DRUGS (8)
  1. BYETTA [Suspect]
     Route: 058
     Dates: start: 20120110, end: 20120831
  2. LANTUS [Concomitant]
  3. GEMFIBROZIL [Concomitant]
  4. METFORMIN [Concomitant]
  5. GLUMETZA [Concomitant]
  6. LIPITOR [Concomitant]
  7. ACTOS (PIOGLITAZONE HYDROCHLORIDE) [Concomitant]
  8. LOVAZA (OMEGA-3 MARINE TRIGLYCERIDES) [Concomitant]

REACTIONS (1)
  - Pancreatitis [None]
